FAERS Safety Report 9279001 (Version 1)
Quarter: 2013Q2

REPORT INFORMATION
  Report Type: Spontaneous
  Country: BE (occurrence: BE)
  Receive Date: 20130508
  Receipt Date: 20130508
  Transmission Date: 20140414
  Serious: Yes (Other)
  Sender: FDA-Public Use
  Company Number: BE-GLAXOSMITHKLINE-B0889745A

PATIENT
  Sex: Female

DRUGS (5)
  1. TROBALT [Suspect]
     Indication: PRODUCT USED FOR UNKNOWN INDICATION
     Dosage: 700MG PER DAY
     Dates: start: 2012
  2. VIMPAT [Concomitant]
  3. LAMICTAL [Concomitant]
  4. TEGRETOL [Concomitant]
  5. KEPPRA [Concomitant]

REACTIONS (1)
  - Grand mal convulsion [Unknown]
